FAERS Safety Report 7962238-6 (Version None)
Quarter: 2011Q4

REPORT INFORMATION
  Report Type: 
  Country: None (occurrence: None)
  Receive Date: 20111207
  Receipt Date: 20111201
  Transmission Date: 20120403
  Serious: Yes (Death, Hospitalization)
  Sender: FDA-Public Use
  Company Number: PHEH2011US010445

PATIENT
  Sex: Male
  Weight: 67.12 kg

DRUGS (10)
  1. WARFARIN SODIUM [Concomitant]
     Dosage: 5 MG, UNK
     Dates: start: 20110218
  2. METOPROLOL TARTRATE [Concomitant]
     Dosage: 25 MG, UNK
     Dates: start: 20110218
  3. KLOR-CON [Concomitant]
     Dosage: 10 10 MEQ TAB
     Dates: start: 20110218
  4. FUROSEMIDE [Concomitant]
     Dosage: 20 MG, UNK
  5. EXJADE [Suspect]
     Dosage: 1750 MG, DAILY
     Route: 048
     Dates: start: 20100430
  6. PROMETHAZINE [Concomitant]
     Dosage: 25 MG, UNK
     Dates: start: 20110218
  7. FENTANYL [Concomitant]
     Dosage: 25 UG, UNK
     Dates: start: 20110218
  8. EXJADE [Suspect]
     Indication: SICKLE CELL ANAEMIA WITH CRISIS
     Dosage: 1750 MG, DAILY
     Route: 048
     Dates: start: 20080801
  9. NITROGLYCERIN ER [Concomitant]
     Dosage: 6.5 MG, UNK
     Route: 048
  10. POLYETHYLENE GLYCOL [Concomitant]
     Dosage: 17 G, UNK
     Dates: start: 20110218

REACTIONS (2)
  - PNEUMONIA [None]
  - DEATH [None]
